FAERS Safety Report 14374546 (Version 1)
Quarter: 2018Q1

REPORT INFORMATION
  Report Type: Spontaneous
  Country: GB (occurrence: GB)
  Receive Date: 20180111
  Receipt Date: 20180111
  Transmission Date: 20180509
  Serious: Yes (Other)
  Sender: FDA-Public Use
  Company Number: GB-AUROBINDO-AUR-APL-2018-001407

PATIENT
  Age: 19 Year
  Sex: Female

DRUGS (4)
  1. TEICOPLANIN [Suspect]
     Active Substance: TEICOPLANIN
     Indication: BETA HAEMOLYTIC STREPTOCOCCAL INFECTION
     Dosage: UNK ()
     Route: 065
  2. CLINDAMYCIN. [Suspect]
     Active Substance: CLINDAMYCIN
     Indication: BETA HAEMOLYTIC STREPTOCOCCAL INFECTION
     Dosage: UNK ()
     Route: 065
  3. CLARITHROMYCIN. [Suspect]
     Active Substance: CLARITHROMYCIN
     Indication: BETA HAEMOLYTIC STREPTOCOCCAL INFECTION
     Dosage: UNK ()
     Route: 065
  4. PIPERACILLIN AND TAZOBACTAM [Suspect]
     Active Substance: PIPERACILLIN SODIUM\TAZOBACTAM SODIUM
     Indication: SEPSIS
     Dosage: UNK ()
     Route: 065

REACTIONS (2)
  - Drug ineffective [Unknown]
  - Exposure during pregnancy [Unknown]
